FAERS Safety Report 13611435 (Version 1)
Quarter: 2017Q2

REPORT INFORMATION
  Report Type: Spontaneous
  Country: US (occurrence: US)
  Receive Date: 20170605
  Receipt Date: 20170605
  Transmission Date: 20170830
  Serious: No
  Sender: FDA-Public Use
  Company Number: US-009507513-1705USA014475

PATIENT
  Sex: Female

DRUGS (1)
  1. BELSOMRA [Suspect]
     Active Substance: SUVOREXANT
     Indication: INSOMNIA
     Dosage: 15 MG, UNK
     Route: 048

REACTIONS (4)
  - Sensory disturbance [Recovered/Resolved]
  - Sleep paralysis [Recovered/Resolved]
  - Nightmare [Recovered/Resolved]
  - Drug ineffective [Recovered/Resolved]
